FAERS Safety Report 6076220-X (Version None)
Quarter: 2009Q1

REPORT INFORMATION
  Report Type: 
  Country: None (occurrence: None)
  Receive Date: 20090210
  Receipt Date: 20090127
  Transmission Date: 20090719
  Serious: Yes (Other)
  Sender: FDA-Public Use
  Company Number: DSM-2009-00065

PATIENT
  Age: 68 Year
  Sex: Male

DRUGS (1)
  1. OLMETEC            (OLMESARTAN MEDOXOMIL) [Suspect]
     Indication: HYPERTENSION
     Dosage: 20 MG (20 MG, 1 IN 1 D), ORAL
     Route: 048
     Dates: start: 20090101, end: 20090101

REACTIONS (3)
  - MYALGIA [None]
  - PYREXIA [None]
  - RASH [None]
